FAERS Safety Report 9908589 (Version 1)
Quarter: 2014Q1

REPORT INFORMATION
  Report Type: Spontaneous
  Country: US (occurrence: US)
  Receive Date: 20140219
  Receipt Date: 20140219
  Transmission Date: 20141002
  Serious: Yes (Other)
  Sender: FDA-Public Use
  Company Number: US-ASTRAZENECA-2014SE09833

PATIENT
  Age: 69 Year
  Sex: Female
  Weight: 90.7 kg

DRUGS (9)
  1. SYMBICORT [Suspect]
     Indication: DYSPNOEA
     Dosage: 160/ 4.5 MCG 1 PUFF BID
     Route: 055
  2. SYMBICORT [Suspect]
     Indication: DYSPNOEA
     Dosage: 160/ 4.5 MCG 1 PUFF DAILY
     Route: 055
  3. LISINOPRIL/HCTZ [Suspect]
     Indication: HYPERTENSION
     Dosage: 20 MG/25 MG DAILY
     Route: 048
  4. CHEMOTHERAPY [Suspect]
  5. SIMVASTATIN [Concomitant]
     Indication: BLOOD CHOLESTEROL ABNORMAL
  6. CITROCAL [Concomitant]
     Dosage: NOT ASKED DAILY
  7. VITAMIN D [Concomitant]
     Dosage: NOT ASKED DAILY
  8. ASPIRIN [Concomitant]
  9. COMBIVENT [Concomitant]
     Indication: MULTIPLE ALLERGIES

REACTIONS (5)
  - Overdose [Unknown]
  - Colon cancer [Unknown]
  - Body height decreased [Unknown]
  - Intentional drug misuse [Unknown]
  - Off label use [Unknown]
